FAERS Safety Report 9195437 (Version 1)
Quarter: 2013Q1

REPORT INFORMATION
  Report Type: Spontaneous
  Country: US (occurrence: US)
  Receive Date: 20130328
  Receipt Date: 20130328
  Transmission Date: 20140127
  Serious: Yes (Death, Hospitalization, Other)
  Sender: FDA-Public Use
  Company Number: US-AMGEN-USASP2013020691

PATIENT
  Age: 62 Year
  Sex: Male

DRUGS (2)
  1. ENBREL [Suspect]
     Indication: PSORIASIS
     Dosage: UNK
     Dates: start: 2010, end: 2012
  2. STELARA [Concomitant]
     Dosage: HAD THREE DOSES

REACTIONS (6)
  - Death [Fatal]
  - Hospitalisation [Recovered/Resolved]
  - Wound infection staphylococcal [Recovered/Resolved]
  - Fall [Recovered/Resolved]
  - Arthritis [Recovered/Resolved]
  - Psoriasis [Not Recovered/Not Resolved]
